FAERS Safety Report 8879960 (Version 4)
Quarter: 2013Q3

REPORT INFORMATION
  Report Type: Spontaneous
  Country: DE (occurrence: DE)
  Receive Date: 20121101
  Receipt Date: 20130806
  Transmission Date: 20140515
  Serious: Yes (Hospitalization, Other)
  Sender: FDA-Public Use
  Company Number: DE-AMGEN-DEUSP2012069089

PATIENT
  Age: 74 Year
  Sex: Male

DRUGS (6)
  1. ENBREL [Suspect]
     Indication: RHEUMATOID ARTHRITIS
     Dosage: 25 MG, 2X/WEEK
     Route: 065
     Dates: start: 20120308, end: 20120826
  2. ENBREL [Suspect]
     Dosage: 25 MG, 2 TIMES/WK
     Route: 065
     Dates: end: 20121025
  3. ENBREL [Suspect]
     Dosage: UNK
     Route: 065
     Dates: start: 20130730
  4. PREDNISOLONE [Concomitant]
     Dosage: 2.5 MG, UNK
  5. IBUPROFEN [Concomitant]
     Dosage: UNK
  6. CORTISONE [Concomitant]
     Dosage: UNK

REACTIONS (3)
  - Skin ulcer [Recovered/Resolved]
  - Mental disorder [Unknown]
  - Infected skin ulcer [Unknown]
